FAERS Safety Report 8409990-3 (Version None)
Quarter: 2012Q2

REPORT INFORMATION
  Report Type: 
  Country: None (occurrence: None)
  Receive Date: 20120605
  Receipt Date: 20120529
  Transmission Date: 20120825
  Serious: Yes (Hospitalization)
  Sender: FDA-Public Use
  Company Number: US-BAYER-2011-045924

PATIENT
  Age: 24 Year
  Sex: Female
  Weight: 100 kg

DRUGS (5)
  1. DROSPIRENONE AND ETHINYL ESTRADIOL [Suspect]
     Indication: PREMENSTRUAL SYNDROME
     Dosage: UNK
     Dates: start: 20090604, end: 20090727
  2. IBUPROFEN [Concomitant]
     Dosage: UNK
     Dates: start: 20090101
  3. NICODERM [Concomitant]
     Dosage: UNK
     Route: 061
     Dates: start: 20090630
  4. NAPROXEN [Concomitant]
     Indication: DYSMENORRHOEA
     Dosage: UNK
     Dates: start: 20090601, end: 20100601
  5. OTHER ANALGESICS AND ANTIPYRETICS [Concomitant]
     Indication: DYSMENORRHOEA
     Dosage: UNK
     Route: 048
     Dates: start: 20090604

REACTIONS (8)
  - VENOUS THROMBOSIS [None]
  - EMOTIONAL DISTRESS [None]
  - DEEP VEIN THROMBOSIS [None]
  - GENERAL PHYSICAL HEALTH DETERIORATION [None]
  - PAIN [None]
  - ANHEDONIA [None]
  - ANXIETY [None]
  - INJURY [None]
